FAERS Safety Report 9885711 (Version 1)
Quarter: 2014Q1

REPORT INFORMATION
  Report Type: Spontaneous
  Country: US (occurrence: US)
  Receive Date: 20140210
  Receipt Date: 20140210
  Transmission Date: 20141002
  Serious: No
  Sender: FDA-Public Use
  Company Number: US-PFIZER INC-2014033657

PATIENT
  Sex: Female

DRUGS (1)
  1. ADVIL PM [Suspect]
     Dosage: 400/76MG (200/38MG TWO CAPLETS), AT NIGHT
     Route: 048
     Dates: start: 20140203, end: 20140203

REACTIONS (3)
  - Drug ineffective [Unknown]
  - Poor quality sleep [Unknown]
  - Confusional state [Unknown]
